FAERS Safety Report 6615736-1 (Version None)
Quarter: 2010Q1

REPORT INFORMATION
  Report Type: 
  Country: None (occurrence: None)
  Receive Date: 20100305
  Receipt Date: 20100301
  Transmission Date: 20100710
  Serious: Yes (Life-Threatening)
  Sender: FDA-Public Use
  Company Number: JP-BAYER-201010356BYL

PATIENT
  Age: 68 Year
  Sex: Male

DRUGS (9)
  1. NEXAVAR [Suspect]
     Indication: HEPATIC NEOPLASM MALIGNANT
     Dosage: TOTAL DAILY DOSE: 800 MG  UNIT DOSE: 200 MG
     Route: 048
     Dates: start: 20090910, end: 20090912
  2. NEXAVAR [Suspect]
     Dosage: UNIT DOSE: 200 MG
     Route: 048
     Dates: start: 20090912, end: 20091225
  3. NEXAVAR [Suspect]
     Dosage: UNIT DOSE: 200 MG
     Route: 048
     Dates: start: 20091225, end: 20100122
  4. ALDACTONE [Concomitant]
     Indication: OEDEMA
     Dosage: UNIT DOSE: 25 MG
     Route: 048
  5. FLUITRAN [Concomitant]
     Indication: OEDEMA
     Dosage: UNIT DOSE: 2 MG
     Route: 048
  6. ADALAT CC [Concomitant]
     Indication: HYPERTENSION
     Dosage: UNIT DOSE: 20 MG
     Route: 048
  7. MICARDIS [Concomitant]
     Indication: HYPERTENSION
     Dosage: UNIT DOSE: 40 MG
     Route: 048
  8. NELBIS [Concomitant]
     Dosage: UNIT DOSE: 250 MG
     Route: 048
  9. NOVORAPID MIX [Concomitant]
     Indication: DIABETES MELLITUS
     Route: 058

REACTIONS (2)
  - BLOOD BILIRUBIN INCREASED [None]
  - JAUNDICE [None]
